FAERS Safety Report 17184842 (Version 2)
Quarter: 2020Q1

REPORT INFORMATION
  Report Type: Spontaneous
  Country: US (occurrence: US)
  Receive Date: 20191220
  Receipt Date: 20200227
  Transmission Date: 20200409
  Serious: Yes (Other)
  Sender: FDA-Public Use
  Company Number: US-ELI_LILLY_AND_COMPANY-US201912008357

PATIENT
  Sex: Male
  Weight: 85.5 kg

DRUGS (4)
  1. ATENOLOL. [Concomitant]
     Active Substance: ATENOLOL
     Indication: PRODUCT USED FOR UNKNOWN INDICATION
     Dosage: UNK
     Route: 065
  2. AIMOVIG [Concomitant]
     Active Substance: ERENUMAB-AOOE
     Indication: PRODUCT USED FOR UNKNOWN INDICATION
     Dosage: UNK
     Dates: start: 201904
  3. SUMATRIPTAN. [Concomitant]
     Active Substance: SUMATRIPTAN
     Indication: PRODUCT USED FOR UNKNOWN INDICATION
     Dosage: UNK
     Route: 065
  4. EMGALITY [Suspect]
     Active Substance: GALCANEZUMAB-GNLM
     Indication: MIGRAINE
     Dosage: 120 MG, MONTHLY (1/M)
     Route: 058
     Dates: start: 20190121, end: 20190321

REACTIONS (13)
  - Back pain [Unknown]
  - Injection site pain [Unknown]
  - Sleep disorder [Unknown]
  - Weight decreased [Unknown]
  - Drug ineffective [Unknown]
  - Memory impairment [Unknown]
  - Myalgia [Unknown]
  - Visual impairment [Unknown]
  - Muscle atrophy [Unknown]
  - Decreased appetite [Unknown]
  - Muscle twitching [Recovering/Resolving]
  - Arthralgia [Unknown]
  - Injection site erythema [Unknown]
